FAERS Safety Report 8370903-4 (Version None)
Quarter: 2012Q2

REPORT INFORMATION
  Report Type: 
  Country: None (occurrence: None)
  Receive Date: 20120518
  Receipt Date: 20110419
  Transmission Date: 20120825
  Serious: No
  Sender: FDA-Public Use
  Company Number: US-ASTRAZENECA-2011SE21641

PATIENT
  Sex: Female

DRUGS (1)
  1. PRILOSEC OTC [Suspect]
     Route: 048
     Dates: start: 20110325, end: 20110408

REACTIONS (8)
  - CHOKING [None]
  - CONDITION AGGRAVATED [None]
  - HEADACHE [None]
  - GASTROINTESTINAL SOUNDS ABNORMAL [None]
  - DIARRHOEA [None]
  - DYSPHAGIA [None]
  - GASTROOESOPHAGEAL REFLUX DISEASE [None]
  - ABDOMINAL PAIN UPPER [None]
